FAERS Safety Report 9596710 (Version 1)
Quarter: 2013Q4

REPORT INFORMATION
  Report Type: Spontaneous
  Country: DE (occurrence: DE)
  Receive Date: 20131004
  Receipt Date: 20131004
  Transmission Date: 20140711
  Serious: Yes (Other)
  Sender: FDA-Public Use
  Company Number: DE-GLAXOSMITHKLINE-B0921758A

PATIENT
  Age: 56 Year
  Sex: Male
  Weight: 98 kg

DRUGS (3)
  1. XGEVA [Suspect]
     Indication: METASTATIC RENAL CELL CARCINOMA
     Dosage: 1680MG CUMULATIVE DOSE
     Route: 058
     Dates: start: 20111214, end: 20130102
  2. PAZOPANIB [Suspect]
     Indication: METASTATIC NEOPLASM
     Dosage: 800MG PER DAY
     Route: 048
     Dates: start: 20121004
  3. UNKNOWN [Concomitant]
     Dates: start: 20110824, end: 20120919

REACTIONS (3)
  - Osteonecrosis of jaw [Recovered/Resolved]
  - Malignant neoplasm progression [Unknown]
  - Tooth disorder [Unknown]
